FAERS Safety Report 12903287 (Version 1)
Quarter: 2016Q4

REPORT INFORMATION
  Report Type: Spontaneous
  Country: US (occurrence: US)
  Receive Date: 20161102
  Receipt Date: 20161102
  Transmission Date: 20170207
  Serious: No
  Sender: FDA-Public Use
  Company Number: US-AKRIMAX-TIR-04505

PATIENT
  Sex: Female
  Weight: 48.58 kg

DRUGS (5)
  1. TIROSINT [Suspect]
     Active Substance: LEVOTHYROXINE SODIUM
     Indication: HYPOTHYROIDISM
     Dosage: ONE 50MCG AND ONE 13MCG CAPSULE DAILY
     Route: 048
  2. MAXALT [Concomitant]
     Active Substance: RIZATRIPTAN BENZOATE
     Indication: PRODUCT USED FOR UNKNOWN INDICATION
  3. TIROSINT [Suspect]
     Active Substance: LEVOTHYROXINE SODIUM
     Indication: HYPOTHYROIDISM
     Dosage: ONE 75MCG CAPSULE DAILY
     Route: 048
  4. TIROSINT [Suspect]
     Active Substance: LEVOTHYROXINE SODIUM
     Indication: HYPOTHYROIDISM
     Route: 048
     Dates: start: 201608
  5. TIROSINT [Suspect]
     Active Substance: LEVOTHYROXINE SODIUM
     Indication: HYPOTHYROIDISM
     Route: 048
     Dates: start: 201608

REACTIONS (14)
  - Hyperthyroidism [Unknown]
  - Product quality issue [Unknown]
  - Fatigue [Unknown]
  - Thyroid function test abnormal [Unknown]
  - Hypothyroidism [Unknown]
  - Product physical issue [Unknown]
  - Nausea [Unknown]
  - Migraine [Unknown]
  - Dizziness [Unknown]
  - Mental impairment [Unknown]
  - Palpitations [Unknown]
  - Constipation [Unknown]
  - Hypotension [Unknown]
  - Change of bowel habit [Unknown]

NARRATIVE: CASE EVENT DATE: 201608
